FAERS Safety Report 5938063-4 (Version None)
Quarter: 2008Q4

REPORT INFORMATION
  Report Type: 
  Country: None (occurrence: None)
  Receive Date: 20081031
  Receipt Date: 20081024
  Transmission Date: 20090506
  Serious: Yes (Other)
  Sender: FDA-Public Use
  Company Number: PHHY2008BR23041

PATIENT
  Age: 44 Year
  Sex: Female
  Weight: 96 kg

DRUGS (6)
  1. DIOVAN [Suspect]
     Indication: HYPERTENSION
     Dosage: 320 MG, QD
     Route: 048
  2. DIOVAN [Suspect]
     Dosage: 160 MG, QD
     Route: 048
     Dates: start: 20080929
  3. METFORMIN HCL [Concomitant]
     Indication: BLOOD INSULIN INCREASED
     Dosage: ONE TABLET IN THE MORNING
     Route: 048
     Dates: start: 20080801
  4. GANFORT [Concomitant]
     Indication: GLAUCOMA
     Dosage: ONE TEAR AT NIGHT
  5. PURAN T4 [Concomitant]
     Indication: THYROID DISORDER
     Dosage: 1 DF, QD
     Route: 048
  6. NATRILIX - SLOW RELEASE [Concomitant]
     Dosage: 1 DF, QD

REACTIONS (5)
  - BLOOD PRESSURE DECREASED [None]
  - BLOOD PRESSURE FLUCTUATION [None]
  - DRY MOUTH [None]
  - NECK PAIN [None]
  - TACHYCARDIA [None]
